FAERS Safety Report 22127636 (Version 3)
Quarter: 2023Q2

REPORT INFORMATION
  Report Type: Report from Study
  Country: US (occurrence: US)
  Receive Date: 20230323
  Receipt Date: 20230410
  Transmission Date: 20230721
  Serious: Yes (Hospitalization)
  Sender: FDA-Public Use
  Company Number: US-ABBVIE-4331653

PATIENT
  Sex: Male

DRUGS (2)
  1. DUOPA [Suspect]
     Active Substance: CARBIDOPA\LEVODOPA
     Indication: Product used for unknown indication
     Route: 050
     Dates: start: 20160325
  2. DUOPA [Suspect]
     Active Substance: CARBIDOPA\LEVODOPA
     Route: 050
     Dates: start: 20160325

REACTIONS (5)
  - Fall [Unknown]
  - Device leakage [Not Recovered/Not Resolved]
  - Device occlusion [Not Recovered/Not Resolved]
  - Malabsorption [Unknown]
  - Hospitalisation [Not Recovered/Not Resolved]
